FAERS Safety Report 13069325 (Version 2)
Quarter: 2017Q3

REPORT INFORMATION
  Report Type: Spontaneous
  Country: US (occurrence: US)
  Receive Date: 20161228
  Receipt Date: 20170706
  Transmission Date: 20171127
  Serious: No
  Sender: FDA-Public Use
  Company Number: US-PFIZER INC-2016592883

PATIENT
  Age: 55 Year
  Sex: Female

DRUGS (1)
  1. PRISTIQ EXTENDED-RELEASE [Suspect]
     Active Substance: DESVENLAFAXINE SUCCINATE
     Indication: DEPRESSION
     Dosage: 100 MG, DAILY(2 TABS)
     Route: 048
     Dates: start: 20080926, end: 20090528

REACTIONS (5)
  - Drug ineffective [Recovered/Resolved]
  - Drug hypersensitivity [Not Recovered/Not Resolved]
  - Irritability [Recovered/Resolved]
  - Weight increased [Recovered/Resolved]
  - Feeling abnormal [Recovered/Resolved]
